FAERS Safety Report 23447732 (Version 1)
Quarter: 2024Q1

REPORT INFORMATION
  Report Type: Report from Study
  Country: NL (occurrence: NL)
  Receive Date: 20240126
  Receipt Date: 20240126
  Transmission Date: 20240410
  Serious: Yes (Hospitalization)
  Sender: FDA-Public Use
  Company Number: NL-AstraZeneca-2024A015571

PATIENT
  Sex: Female
  Weight: 4.1 kg

DRUGS (1)
  1. SYNAGIS [Suspect]
     Active Substance: PALIVIZUMAB
     Indication: Product used for unknown indication
     Route: 030
     Dates: start: 20231214

REACTIONS (2)
  - Hypophagia [Not Recovered/Not Resolved]
  - Fluid intake reduced [Not Recovered/Not Resolved]

NARRATIVE: CASE EVENT DATE: 20240101
